FAERS Safety Report 4813360-4 (Version None)
Quarter: 2005Q4

REPORT INFORMATION
  Report Type: 
  Country: None (occurrence: None)
  Receive Date: 20051028
  Receipt Date: 20050310
  Transmission Date: 20060501
  Serious: Yes (Hospitalization)
  Sender: FDA-Public Use
  Company Number: NL-AVENTIS-200510618EU

PATIENT
  Age: 55 Year
  Sex: Male

DRUGS (4)
  1. DOCETAXEL [Suspect]
     Indication: PROSTATE CANCER
     Route: 042
     Dates: start: 20040721, end: 20050217
  2. RISEDRONATE [Suspect]
     Indication: PROSTATE CANCER
     Route: 048
     Dates: start: 20040721
  3. PREDNISON [Suspect]
     Indication: PROSTATE CANCER
     Route: 048
     Dates: start: 20040721
  4. ACETAMINOPHEN [Concomitant]
     Route: 048
     Dates: start: 20040708

REACTIONS (4)
  - GUILLAIN-BARRE SYNDROME [None]
  - PNEUMONIA [None]
  - QUADRIPLEGIA [None]
  - RESPIRATORY FAILURE [None]
